FAERS Safety Report 25691876 (Version 1)
Quarter: 2025Q3

REPORT INFORMATION
  Report Type: Spontaneous
  Country: US (occurrence: US)
  Receive Date: 20250818
  Receipt Date: 20250818
  Transmission Date: 20251021
  Serious: No
  Sender: PFIZER
  Company Number: US-PFIZER INC-202500164770

PATIENT
  Age: 66 Year
  Sex: Female

DRUGS (7)
  1. NURTEC ODT [Suspect]
     Active Substance: RIMEGEPANT SULFATE
     Indication: Migraine
  2. ENBREL [Concomitant]
     Active Substance: ETANERCEPT
     Indication: Rheumatoid arthritis
     Dosage: 50 MILLIGRAM, QWK
     Route: 058
     Dates: start: 202505
  3. TRAMADOL [Concomitant]
     Active Substance: TRAMADOL
     Route: 058
  4. FIORICET [Concomitant]
     Active Substance: ACETAMINOPHEN\BUTALBITAL\CAFFEINE
  5. DORZOLAMIDE [Concomitant]
     Active Substance: DORZOLAMIDE
  6. LATANOPROST [Concomitant]
     Active Substance: LATANOPROST
  7. CELEBREX [Concomitant]
     Active Substance: CELECOXIB

REACTIONS (1)
  - Drug ineffective [Unknown]

NARRATIVE: CASE EVENT DATE: 20250101
